FAERS Safety Report 9483506 (Version 1)
Quarter: 2013Q3

REPORT INFORMATION
  Report Type: Spontaneous
  Country: CA (occurrence: CA)
  Receive Date: 20130828
  Receipt Date: 20130828
  Transmission Date: 20140515
  Serious: Yes (Hospitalization)
  Sender: FDA-Public Use
  Company Number: CA-AMGEN-KDL273745

PATIENT
  Age: 60 Year
  Sex: Male
  Weight: 102.6 kg

DRUGS (7)
  1. ENBREL [Suspect]
     Indication: RHEUMATOID ARTHRITIS
     Dosage: 50 MG, QWK
     Route: 058
     Dates: start: 20060623
  2. METFORMIN [Concomitant]
  3. INSULIN [Concomitant]
  4. VALSARTAN [Concomitant]
  5. ATORVASTATIN CALCIUM [Concomitant]
  6. ATENOLOL [Concomitant]
  7. ALLOPURINOL [Concomitant]

REACTIONS (3)
  - Gangrene [Unknown]
  - Local swelling [Unknown]
  - Pain in extremity [Unknown]
